FAERS Safety Report 12037949 (Version 1)
Quarter: 2016Q1

REPORT INFORMATION
  Report Type: Spontaneous
  Country: US (occurrence: None)
  Receive Date: 20160205
  Receipt Date: 20160205
  Transmission Date: 20160526
  Serious: No
  Sender: FDA-Public Use
  Company Number: None

PATIENT
  Age: 61 Year
  Sex: Male

DRUGS (1)
  1. RIBASPHERE [Suspect]
     Active Substance: RIBAVIRIN
     Indication: HEPATITIS C
     Dosage: DOSE FORM: ORAL  FREQUENCY: 3 IN MORNING AND 2 IN EVENING
     Route: 048
     Dates: start: 20151201

REACTIONS (4)
  - Rash [None]
  - Headache [None]
  - Insomnia [None]
  - Influenza like illness [None]

NARRATIVE: CASE EVENT DATE: 20151205
